FAERS Safety Report 5203841-6 (Version None)
Quarter: 2007Q1

REPORT INFORMATION
  Report Type: 
  Country: None (occurrence: None)
  Receive Date: 20070108
  Receipt Date: 20070108
  Transmission Date: 20070707
  Serious: Yes (Other)
  Sender: FDA-Public Use
  Company Number: None

PATIENT
  Age: 50 Year
  Sex: Male
  Weight: 101 kg

DRUGS (10)
  1. SANDOSTATIN [Suspect]
     Indication: DIABETES MELLITUS NON-INSULIN-DEPENDENT
     Dosage: 20 MG X1 IM
     Route: 030
     Dates: start: 20061212, end: 20061212
  2. LANTUS [Concomitant]
  3. HUMALOG [Concomitant]
  4. METFORMIN [Concomitant]
  5. AMARYL [Concomitant]
  6. LISINOPRIL [Concomitant]
  7. CITALOPRAM HYDROBROMIDE [Concomitant]
  8. ATENOLOL [Concomitant]
  9. AMTRIPTILYE [Concomitant]
  10. ASPIRIN [Concomitant]

REACTIONS (2)
  - DIARRHOEA [None]
  - VIRAL INFECTION [None]
